FAERS Safety Report 8776663 (Version 1)
Quarter: 2012Q4

REPORT INFORMATION
  Report Type: 
  Country: US (occurrence: US)
  Receive Date: 20120910
  Receipt Date: 20120910
  Transmission Date: 20130627
  Serious: Yes (Other)
  Sender: FDA-Public Use
  Company Number: CHPA2012US019310

PATIENT
  Age: 28 Year
  Sex: Female

DRUGS (2)
  1. EXCEDRIN UNKNOWN [Suspect]
     Indication: HEADACHE
     Dosage: 2 DF, ONCE/SINGLE
     Route: 048
     Dates: start: 20120728, end: 20120728
  2. CYMBALTA [Suspect]
     Indication: ANXIETY
     Dosage: Unk, Unk
     Route: 048

REACTIONS (3)
  - Anxiety [Not Recovered/Not Resolved]
  - Dyspnoea [Not Recovered/Not Resolved]
  - Nightmare [Not Recovered/Not Resolved]
